FAERS Safety Report 8818672 (Version 1)
Quarter: 2012Q4

REPORT INFORMATION
  Report Type: Spontaneous
  Country: US (occurrence: None)
  Receive Date: 20121002
  Receipt Date: 20121002
  Transmission Date: 20130627
  Serious: Yes (Other)
  Sender: FDA-Public Use
  Company Number: 2010US003246

PATIENT
  Age: 65 Year
  Sex: Female

DRUGS (1)
  1. VESICARE (SOLIFENACIN) [Suspect]
     Indication: URINARY INCONTINENCE
     Dosage: 5 mg, UID/QD, Oral
     Route: 048
     Dates: start: 201008, end: 201008

REACTIONS (2)
  - Glaucoma [None]
  - Vision blurred [None]
